FAERS Safety Report 5154647-8 (Version None)
Quarter: 2006Q4

REPORT INFORMATION
  Report Type: 
  Country: None (occurrence: None)
  Receive Date: 20061113
  Receipt Date: 20061030
  Transmission Date: 20070319
  Serious: Yes (Death)
  Sender: FDA-Public Use
  Company Number: E2020-00638-SPO-CH

PATIENT
  Age: 87 Year
  Sex: Male
  Weight: 65 kg

DRUGS (13)
  1. ARICEPT [Suspect]
     Indication: DEMENTIA
     Dosage: SEE IMAGE, ORAL
     Route: 048
     Dates: start: 20060724, end: 20060802
  2. ARICEPT [Suspect]
     Indication: DEMENTIA
     Dosage: SEE IMAGE, ORAL
     Route: 048
     Dates: start: 20060803, end: 20060803
  3. DIPIPERON (PIPAMPERONE) [Suspect]
     Indication: DRUG USE FOR UNKNOWN INDICATION
     Dosage: 20 MG, 1 IN 1 D, ORAL
     Route: 048
     Dates: start: 20060728, end: 20060813
  4. NEXIUM [Suspect]
     Indication: DRUG USE FOR UNKNOWN INDICATION
     Dosage: 40 MG, 1 IN 1 D, ORAL
     Route: 048
     Dates: start: 20060628, end: 20060813
  5. AUGMENTIN '125' [Suspect]
     Indication: PNEUMONIA
     Dosage: SEE IMAGE
     Dates: start: 20060619, end: 20060627
  6. MARCUMAR [Suspect]
     Indication: DRUG USE FOR UNKNOWN INDICATION
     Dosage: 3  MG
     Dates: start: 20060628, end: 20060813
  7. TOREM (TORASEMIDE) [Suspect]
     Indication: DRUG USE FOR UNKNOWN INDICATION
     Dosage: 10 MG TO 25 MG, ORAL
     Route: 048
     Dates: start: 20060627, end: 20060813
  8. DIOVAN [Suspect]
     Indication: DRUG USE FOR UNKNOWN INDICATION
     Dosage: 80 MG, 1 IN 1 D, ORAL
     Route: 048
     Dates: start: 20060619, end: 20060813
  9. LORAZEPAM [Concomitant]
  10. FRAGMIN [Concomitant]
  11. PERENTEROL (YEAST DRIED) [Concomitant]
  12. LASIX [Concomitant]
  13. ACETYLCYSTEINE [Concomitant]

REACTIONS (16)
  - BENIGN PROSTATIC HYPERPLASIA [None]
  - CARDIAC DISORDER [None]
  - CARDIAC VALVE DISEASE [None]
  - DEMENTIA [None]
  - HYPERTENSION [None]
  - ILL-DEFINED DISORDER [None]
  - MALNUTRITION [None]
  - METASTASES TO LIVER [None]
  - ONYCHOMYCOSIS [None]
  - OSTEOARTHRITIS [None]
  - PNEUMONIA [None]
  - PULMONARY EMBOLISM [None]
  - RASH MACULO-PAPULAR [None]
  - RECTAL CANCER [None]
  - RENAL FUNCTION TEST ABNORMAL [None]
  - TOXIC EPIDERMAL NECROLYSIS [None]
